FAERS Safety Report 8785075 (Version 1)
Quarter: 2012Q4

REPORT INFORMATION
  Report Type: 
  Country: US (occurrence: US)
  Receive Date: 20120914
  Receipt Date: 20120914
  Transmission Date: 20130627
  Serious: Yes (Hospitalization)
  Sender: FDA-Public Use
  Company Number: US-ACTELION-A-NJ2012-71258

PATIENT
  Age: 63 Year
  Sex: Female

DRUGS (1)
  1. VELETRI [Suspect]
     Indication: PULMONARY ARTERIAL HYPERTENSION
     Dosage: 24 ng/kg, per min
     Route: 041
     Dates: start: 20101220

REACTIONS (4)
  - Rectal prolapse [Unknown]
  - Back pain [Unknown]
  - Abdominal pain [Unknown]
  - Rash [Unknown]
